FAERS Safety Report 8084569-4 (Version None)
Quarter: 2012Q1

REPORT INFORMATION
  Report Type: 
  Country: None (occurrence: None)
  Receive Date: 20120128
  Receipt Date: 20110325
  Transmission Date: 20120608
  Serious: No
  Sender: FDA-Public Use
  Company Number: US-ABBOTT-11P-163-0712139-00

PATIENT
  Age: 57 Year
  Sex: Female

DRUGS (5)
  1. HUMIRA [Suspect]
     Indication: CROHN'S DISEASE
     Dates: start: 20110202
  2. DONNATAL [Concomitant]
     Indication: ABDOMINAL PAIN
     Dosage: AS NEEDED
  3. PROBIOTICS [Concomitant]
     Indication: BOWEL MOVEMENT IRREGULARITY
  4. FIORICET 325 CAFF [Concomitant]
     Indication: PAIN
     Dosage: 1-2 TABLETS EVERY 4-6 HOURS AS NEEDED
  5. MOTRIN [Concomitant]
     Indication: PRODUCT USED FOR UNKNOWN INDICATION
     Dosage: AS NEEDED

REACTIONS (4)
  - FATIGUE [None]
  - ABDOMINAL RIGIDITY [None]
  - CROHN'S DISEASE [None]
  - POLLAKIURIA [None]
